FAERS Safety Report 16969915 (Version 2)
Quarter: 2019Q4

REPORT INFORMATION
  Report Type: Spontaneous
  Country: US (occurrence: CZ)
  Receive Date: 20191029
  Receipt Date: 20191118
  Transmission Date: 20200122
  Serious: Yes (Hospitalization, Other)
  Sender: FDA-Public Use
  Company Number: US-SUNOVION-2019SUN004626

PATIENT

DRUGS (11)
  1. INDACATEROL [Suspect]
     Active Substance: INDACATEROL
     Indication: CHRONIC OBSTRUCTIVE PULMONARY DISEASE
     Dosage: 150 ?G, QD
     Route: 055
     Dates: start: 201301
  2. TARKA [Concomitant]
     Active Substance: TRANDOLAPRIL\VERAPAMIL HYDROCHLORIDE
     Indication: PRODUCT USED FOR UNKNOWN INDICATION
     Dosage: UNK UNK, QD
     Route: 065
  3. EUPHYLLIN [Concomitant]
     Indication: PRODUCT USED FOR UNKNOWN INDICATION
     Dosage: 300 MG, BID
     Route: 065
  4. SPIRIVA [Concomitant]
     Active Substance: TIOTROPIUM BROMIDE MONOHYDRATE
     Indication: PRODUCT USED FOR UNKNOWN INDICATION
     Dosage: UNK, BID
     Route: 055
  5. CYNT [Concomitant]
     Indication: PRODUCT USED FOR UNKNOWN INDICATION
     Dosage: 0.3 MG
     Route: 065
  6. ENELBIN [Concomitant]
     Indication: PRODUCT USED FOR UNKNOWN INDICATION
     Dosage: 100 MG, QD
     Route: 065
  7. INDACATEROL [Suspect]
     Active Substance: INDACATEROL
     Dosage: 150 ?G, QD
     Route: 065
     Dates: start: 201304, end: 201501
  8. BERODUAL [Concomitant]
     Active Substance: FENOTEROL HYDROBROMIDE\IPRATROPIUM BROMIDE
     Indication: COUGH
     Dosage: UNK, PRN
     Route: 065
  9. BERODUAL [Concomitant]
     Active Substance: FENOTEROL HYDROBROMIDE\IPRATROPIUM BROMIDE
     Indication: DYSPNOEA
  10. ERDOMED [Concomitant]
     Active Substance: ERDOSTEINE
     Indication: SECRETION DISCHARGE
     Dosage: UNK, BID
     Route: 065
  11. ESOMEPRAZOLE. [Concomitant]
     Active Substance: ESOMEPRAZOLE MAGNESIUM
     Indication: PRODUCT USED FOR UNKNOWN INDICATION
     Dosage: 40 MG, QD
     Route: 065

REACTIONS (25)
  - Pneumothorax [Unknown]
  - Dyspnoea exertional [Unknown]
  - Feeding disorder [Unknown]
  - Febrile neutropenia [Unknown]
  - Oesophageal polyp [Recovered/Resolved]
  - Cholelithiasis [Unknown]
  - Infection [Unknown]
  - Pneumonia [Unknown]
  - Chronic obstructive pulmonary disease [Unknown]
  - Pulmonary function test decreased [Unknown]
  - Emphysema [Unknown]
  - Bronchial carcinoma [Unknown]
  - Adenocarcinoma [Unknown]
  - Neck pain [Unknown]
  - Condition aggravated [Unknown]
  - Pulmonary mass [Unknown]
  - Hypertension [Unknown]
  - Neutropenia [Unknown]
  - Cough [Recovered/Resolved]
  - Gingival bleeding [Unknown]
  - Oropharyngeal pain [Unknown]
  - Blood glucose increased [Unknown]
  - Aortic arteriosclerosis [Unknown]
  - Spinal osteoarthritis [Unknown]
  - Dyspepsia [Unknown]

NARRATIVE: CASE EVENT DATE: 2013
